FAERS Safety Report 23591526 (Version 1)
Quarter: 2024Q1

REPORT INFORMATION
  Report Type: Spontaneous
  Country: US (occurrence: None)
  Receive Date: 20240301
  Receipt Date: 20240301
  Transmission Date: 20240410
  Serious: Yes (Disabling)
  Sender: FDA-Public Use
  Company Number: None

PATIENT
  Age: 77 Year
  Sex: Male
  Weight: 86.18 kg

DRUGS (15)
  1. TIRZEPATIDE [Suspect]
     Active Substance: TIRZEPATIDE
     Indication: Product used for unknown indication
     Dates: start: 20230826, end: 20231014
  2. ZETIA [Concomitant]
     Active Substance: EZETIMIBE
  3. IRBESARTAN [Concomitant]
     Active Substance: IRBESARTAN
  4. CLORTHALADONE [Concomitant]
  5. SPIRONOLACTONE [Concomitant]
     Active Substance: SPIRONOLACTONE
  6. PRALUENT [Concomitant]
     Active Substance: ALIROCUMAB
  7. OMEPRAZOLE [Concomitant]
     Active Substance: OMEPRAZOLE
  8. HYDROCODONE [Concomitant]
     Active Substance: HYDROCODONE
  9. ASPIRIN [Concomitant]
     Active Substance: ASPIRIN
  10. ARED [Concomitant]
  11. ZYRTEC [Concomitant]
     Active Substance: CETIRIZINE HYDROCHLORIDE
  12. SINGULAIR [Concomitant]
     Active Substance: MONTELUKAST SODIUM
  13. VITAMIN B COMPLEX [Concomitant]
     Active Substance: CYANOCOBALAMIN\DEXPANTHENOL\NIACINAMIDE\PYRIDOXINE HYDROCHLORIDE\RIBOFLAVIN 5^-PHOSPHATE SODIUM\THIA
  14. BREO [Concomitant]
  15. HERBAL NOS [Concomitant]
     Active Substance: HERBALS

REACTIONS (12)
  - Muscular weakness [None]
  - Fatigue [None]
  - Decreased appetite [None]
  - Gastrointestinal pain [None]
  - Nausea [None]
  - Frequent bowel movements [None]
  - Weight decreased [None]
  - COVID-19 [None]
  - Therapy cessation [None]
  - Impaired work ability [None]
  - Muscle strength abnormal [None]
  - Dyspnoea [None]

NARRATIVE: CASE EVENT DATE: 20230907
